FAERS Safety Report 8853382 (Version 1)
Quarter: 2012Q4

REPORT INFORMATION
  Report Type: 
  Country: US (occurrence: US)
  Receive Date: 20121022
  Receipt Date: 20121022
  Transmission Date: 20130627
  Serious: No
  Sender: FDA-Public Use
  Company Number: US-ASTRAZENECA-2012SE77666

PATIENT
  Age: 23 Year
  Sex: Female
  Weight: 113.4 kg

DRUGS (4)
  1. SYMBICORT [Suspect]
     Indication: ASTHMA
     Dosage: 160/4.5 MCG, BID
     Route: 055
  2. VENTOLIN [Concomitant]
  3. CLARITIN [Concomitant]
  4. BIRTH CONTROL PILL [Concomitant]

REACTIONS (2)
  - Dyspnoea [Unknown]
  - Drug dose omission [Unknown]
